FAERS Safety Report 7131088-5 (Version None)
Quarter: 2010Q4

REPORT INFORMATION
  Report Type: 
  Country: None (occurrence: None)
  Receive Date: 20101124
  Receipt Date: 20101124
  Transmission Date: 20110411
  Serious: Yes (Other)
  Sender: FDA-Public Use
  Company Number: None

PATIENT
  Sex: Female
  Weight: 89.8122 kg

DRUGS (3)
  1. ZOLOFT [Suspect]
     Dosage: 50 M - TWICE TWICE DAILY
  2. ALLEGRA [Suspect]
     Indication: SKIN DISORDER
     Dosage: 180M DAILY
  3. PREVACID [Concomitant]

REACTIONS (2)
  - PHOTOSENSITIVITY REACTION [None]
  - VITAMIN D DEFICIENCY [None]
